FAERS Safety Report 8850054 (Version 2)
Quarter: 2012Q4

REPORT INFORMATION
  Report Type: Report from Study
  Country: DE (occurrence: DE)
  Receive Date: 20121019
  Receipt Date: 20121026
  Transmission Date: 20130627
  Serious: Yes (Life-Threatening)
  Sender: FDA-Public Use
  Company Number: DE-PFIZER INC-2012255787

PATIENT
  Age: 36 Year
  Sex: Female

DRUGS (3)
  1. DAUNORUBICIN HCL [Suspect]
     Indication: ACUTE MYELOID LEUKAEMIA
     Dosage: 110 mg, 1x/day
     Route: 042
     Dates: start: 20120508, end: 20120510
  2. CYTARABINE [Suspect]
     Indication: ACUTE MYELOID LEUKAEMIA
     Dosage: 3 g/m2, cyclic, twice daily on day 1, 3, 5
     Route: 042
     Dates: start: 20120904, end: 20120908
  3. DASATINIB [Suspect]
     Indication: ACUTE MYELOID LEUKAEMIA
     Dosage: 100 mg, 1x/day, starting on day 6
     Dates: start: 20120909

REACTIONS (3)
  - Neutropenic sepsis [Recovered/Resolved]
  - Lower gastrointestinal haemorrhage [Recovered/Resolved]
  - Neutropenic colitis [Not Recovered/Not Resolved]
